FAERS Safety Report 7438489-6 (Version None)
Quarter: 2011Q2

REPORT INFORMATION
  Report Type: 
  Country: None (occurrence: None)
  Receive Date: 20110426
  Receipt Date: 20110420
  Transmission Date: 20111010
  Serious: Yes (Hospitalization)
  Sender: FDA-Public Use
  Company Number: FR-PFIZER INC-2011086265

PATIENT
  Age: 69 Year
  Sex: Male

DRUGS (6)
  1. LYRICA [Suspect]
     Dosage: 1 DF, 3X/DAY
     Route: 048
     Dates: end: 20110322
  2. PROZAC [Concomitant]
     Dosage: 1 DF, 1X/DAY
     Route: 048
  3. LIORESAL [Concomitant]
     Dosage: 1 DF, 1X/DAY
     Route: 048
  4. LYRICA [Suspect]
     Indication: MOTOR DYSFUNCTION
     Dosage: 1 DF, 1X/DAY
     Route: 048
     Dates: start: 20110223
  5. CRESTOR [Concomitant]
     Dosage: 1 DF, 1X/DAY
     Route: 048
  6. LOXEN [Concomitant]
     Dosage: 2 DF, 1X/DAY
     Route: 048

REACTIONS (3)
  - ACUTE PSYCHOSIS [None]
  - HALLUCINATION, VISUAL [None]
  - HALLUCINATION, SYNAESTHETIC [None]
